FAERS Safety Report 11630520 (Version 1)
Quarter: 2015Q4

REPORT INFORMATION
  Report Type: Spontaneous
  Country: US (occurrence: US)
  Receive Date: 20151014
  Receipt Date: 20151014
  Transmission Date: 20160304
  Serious: No
  Sender: FDA-Public Use
  Company Number: US-UNICHEM LABORATORIES LIMITED-UCM201508-000558

PATIENT
  Age: 66 Year
  Sex: Female
  Weight: 72.12 kg

DRUGS (4)
  1. PROAIR HFA [Concomitant]
     Active Substance: ALBUTEROL SULFATE
     Indication: DYSPNOEA
  2. HYDROCHOLOTHIAZIDE 25 MG TABLET [Suspect]
     Active Substance: HYDROCHLOROTHIAZIDE
     Route: 048
     Dates: start: 201505
  3. ASPIRIN. [Concomitant]
     Active Substance: ASPIRIN
  4. METOPROLOL [Concomitant]
     Active Substance: METOPROLOL
     Indication: HYPERTENSION
     Route: 048

REACTIONS (5)
  - Fluid retention [Recovering/Resolving]
  - Balance disorder [Recovering/Resolving]
  - Blood pressure fluctuation [Recovering/Resolving]
  - Peripheral swelling [Recovering/Resolving]
  - Dyspnoea [Recovering/Resolving]

NARRATIVE: CASE EVENT DATE: 201505
